FAERS Safety Report 5362849-0 (Version None)
Quarter: 2007Q2

REPORT INFORMATION
  Report Type: 
  Country: None (occurrence: None)
  Receive Date: 20070615
  Receipt Date: 20070607
  Transmission Date: 20071010
  Serious: Yes (Hospitalization)
  Sender: FDA-Public Use
  Company Number: HECT-10277

PATIENT
  Age: 79 Year
  Sex: Male

DRUGS (4)
  1. HECTOROL [Suspect]
     Indication: HYPERPARATHYROIDISM SECONDARY
     Dosage: 1 MCG DAILY PO
     Route: 048
     Dates: start: 20060101
  2. HECTOROL [Suspect]
     Indication: HYPERPARATHYROIDISM SECONDARY
     Dosage: 1 MCG DAILY PO
     Route: 048
     Dates: start: 20070101
  3. ZEMPLAR. MFR: ABBOTT LABORATORIES [Concomitant]
  4. CALCITRIOL [Concomitant]

REACTIONS (6)
  - BLOOD PARATHYROID HORMONE INCREASED [None]
  - CARDIAC DISORDER [None]
  - DIZZINESS [None]
  - HYPERHIDROSIS [None]
  - PARANOIA [None]
  - PRURITUS [None]
